FAERS Safety Report 25038711 (Version 1)
Quarter: 2025Q1

REPORT INFORMATION
  Report Type: Spontaneous
  Country: IL (occurrence: IL)
  Receive Date: 20250304
  Receipt Date: 20250304
  Transmission Date: 20250409
  Serious: Yes (Hospitalization, Other)
  Sender: NOVO NORDISK
  Company Number: IL-NOVOPROD-1378363

PATIENT
  Age: 65 Year
  Sex: Female

DRUGS (1)
  1. OZEMPIC [Suspect]
     Active Substance: SEMAGLUTIDE
     Indication: Weight control
     Dates: start: 202110

REACTIONS (7)
  - Suicide attempt [Recovering/Resolving]
  - Suicidal ideation [Recovering/Resolving]
  - Depressive symptom [Unknown]
  - Muscle atrophy [Unknown]
  - Diarrhoea [Unknown]
  - Fatigue [Unknown]
  - Off label use [Recovered/Resolved]

NARRATIVE: CASE EVENT DATE: 20211001
